FAERS Safety Report 8894994 (Version 1)
Quarter: 2012Q4

REPORT INFORMATION
  Report Type: 
  Country: US (occurrence: US)
  Receive Date: 20121108
  Receipt Date: 20121108
  Transmission Date: 20130627
  Serious: Yes (Other)
  Sender: FDA-Public Use
  Company Number: US-MYLANLABS-2012S1022583

PATIENT
  Age: 28 Year
  Sex: Male

DRUGS (3)
  1. LINEZOLID [Suspect]
     Indication: STAPHYLOCOCCAL INFECTION
     Route: 065
  2. BUSPIRONE [Interacting]
     Route: 065
  3. PETHIDINE [Suspect]
     Indication: CHILLS
     Dosage: 1 dose
     Route: 065

REACTIONS (5)
  - Serotonin syndrome [Recovering/Resolving]
  - Hyperthermia [Recovering/Resolving]
  - Tachycardia [Recovering/Resolving]
  - Hypertension [Recovering/Resolving]
  - Drug interaction [Recovered/Resolved]
